FAERS Safety Report 11537921 (Version 1)
Quarter: 2015Q3

REPORT INFORMATION
  Report Type: Spontaneous
  Country: US (occurrence: US)
  Receive Date: 20150922
  Receipt Date: 20150922
  Transmission Date: 20151125
  Serious: No
  Sender: FDA-Public Use
  Company Number: US-SA-2015SA012024

PATIENT
  Age: 74 Year
  Sex: Male

DRUGS (2)
  1. PROVENGE [Suspect]
     Active Substance: SIPULEUCEL-T
     Indication: PROSTATE CANCER METASTATIC
     Route: 042
     Dates: start: 20150109, end: 20150109
  2. TUBERCULIN PPD [Suspect]
     Active Substance: TUBERCULIN PURIFIED PROTEIN DERIVATIVE
     Indication: TUBERCULIN TEST
     Route: 065
     Dates: start: 20150113, end: 20150113

REACTIONS (1)
  - Rash erythematous [Unknown]

NARRATIVE: CASE EVENT DATE: 20150113
